FAERS Safety Report 5279563-2 (Version None)
Quarter: 2007Q1

REPORT INFORMATION
  Report Type: 
  Country: None (occurrence: None)
  Receive Date: 20070328
  Receipt Date: 20070319
  Transmission Date: 20070707
  Serious: Yes (Hospitalization, Disabling)
  Sender: FDA-Public Use
  Company Number: US-MERCK-0605USA00515

PATIENT
  Age: 67 Year
  Sex: Female

DRUGS (4)
  1. VYTORIN [Suspect]
     Indication: BLOOD CHOLESTEROL INCREASED
     Route: 048
     Dates: start: 20050603, end: 20050612
  2. ATACAND [Concomitant]
     Route: 065
  3. K-DUR 10 [Concomitant]
     Route: 065
  4. LASIX [Concomitant]
     Route: 065

REACTIONS (11)
  - HERPES ZOSTER [None]
  - HYPERGLYCAEMIA [None]
  - INTESTINAL FUNCTIONAL DISORDER [None]
  - LEUKOCYTOSIS [None]
  - MUSCLE ATROPHY [None]
  - POLYMYALGIA RHEUMATICA [None]
  - ROSACEA [None]
  - SERONEGATIVE ARTHRITIS [None]
  - SERUM SICKNESS [None]
  - SKIN LACERATION [None]
  - URINARY TRACT INFECTION [None]
